FAERS Safety Report 6414411-6 (Version None)
Quarter: 2009Q4

REPORT INFORMATION
  Report Type: 
  Country: None (occurrence: None)
  Receive Date: 20091026
  Receipt Date: 20091019
  Transmission Date: 20100525
  Serious: Yes (Other)
  Sender: FDA-Public Use
  Company Number: US-JNJCH-2009027815

PATIENT
  Age: 34 Year
  Sex: Female
  Weight: 90.7 kg

DRUGS (1)
  1. LISTERINE WHITENING PRE-BRUSH RINSE [Suspect]
     Indication: DENTAL CARE
     Dosage: TEXT:RECOMMENDED AMOUNT TWICE DAILY
     Route: 048
     Dates: start: 20091015, end: 20091019

REACTIONS (2)
  - AGEUSIA [None]
  - APPLICATION SITE EXFOLIATION [None]
